FAERS Safety Report 8521326-6 (Version None)
Quarter: 2012Q3

REPORT INFORMATION
  Report Type: 
  Country: None (occurrence: None)
  Receive Date: 20120719
  Receipt Date: 20120704
  Transmission Date: 20120928
  Serious: Yes (Other)
  Sender: FDA-Public Use
  Company Number: GB-WATSON-2012-11943

PATIENT
  Age: 66 Year
  Sex: Female

DRUGS (3)
  1. NITROFURANTOIN [Suspect]
     Indication: BLADDER DISORDER
     Route: 065
  2. ATORVASTATIN [Suspect]
     Indication: PRODUCT USED FOR UNKNOWN INDICATION
     Dosage: 10 MG, UNKNOWN
     Route: 065
     Dates: start: 20100101
  3. NITROFURANTOIN [Suspect]
     Indication: URINARY TRACT INFECTION
     Route: 065

REACTIONS (4)
  - URINARY TRACT INFECTION [None]
  - SKIN BURNING SENSATION [None]
  - ERYTHEMA [None]
  - SKIN IRRITATION [None]
